FAERS Safety Report 9717370 (Version 2)
Quarter: 2020Q2

REPORT INFORMATION
  Report Type: Spontaneous
  Country: US (occurrence: US)
  Receive Date: 20131127
  Receipt Date: 20200423
  Transmission Date: 20200714
  Serious: No
  Sender: FDA-Public Use
  Company Number: US-PFIZER INC-2013336335

PATIENT
  Age: 42 Year
  Sex: Female
  Weight: 100 kg

DRUGS (2)
  1. XELJANZ [Suspect]
     Active Substance: TOFACITINIB CITRATE
     Indication: RHEUMATOID ARTHRITIS
     Dosage: 5 MG, 2X/DAY
     Dates: start: 201310
  2. XELJANZ [Suspect]
     Active Substance: TOFACITINIB CITRATE
     Dosage: 5 MG, UNK
     Dates: start: 20151204

REACTIONS (11)
  - Hyperhidrosis [Unknown]
  - Discomfort [Unknown]
  - Product dose omission [Unknown]
  - Pain [Unknown]
  - Insomnia [Unknown]
  - Night sweats [Unknown]
  - Depression [Unknown]
  - Arthralgia [Unknown]
  - Nightmare [Unknown]
  - Asthenia [Unknown]
  - Blood cholesterol increased [Unknown]

NARRATIVE: CASE EVENT DATE: 2013
